FAERS Safety Report 4876859-0 (Version None)
Quarter: 2006Q1

REPORT INFORMATION
  Report Type: 
  Country: None (occurrence: None)
  Receive Date: 20060109
  Receipt Date: 20060109
  Transmission Date: 20060701
  Serious: Yes (Hospitalization)
  Sender: FDA-Public Use
  Company Number: None

PATIENT
  Sex: Female
  Weight: 76.6579 kg

DRUGS (2)
  1. DOCETAXEL [Suspect]
     Indication: MALIGNANT MELANOMA
     Dosage: 90 MILLIGRAMS   EVERY 21 DAYS  IV DRIP
     Route: 042
     Dates: start: 20051025, end: 20051025
  2. LENALINAMIDE [Suspect]
     Indication: MALIGNANT MELANOMA
     Dosage: 5 MILLIGRAMS  DAILY  PO
     Route: 048
     Dates: start: 20051025, end: 20051031

REACTIONS (3)
  - BALANCE DISORDER [None]
  - FALL [None]
  - HIP FRACTURE [None]
